FAERS Safety Report 8407354-X (Version None)
Quarter: 2012Q2

REPORT INFORMATION
  Report Type: 
  Country: None (occurrence: None)
  Receive Date: 20120604
  Receipt Date: 20120227
  Transmission Date: 20120825
  Serious: Yes (Hospitalization)
  Sender: FDA-Public Use
  Company Number: ID-ROCHE-1047714

PATIENT
  Age: 15 Year
  Sex: Female

DRUGS (5)
  1. CYCLOPHOSPHAMIDE [Concomitant]
  2. VINCRISTINE [Concomitant]
  3. MABTHERA [Suspect]
     Indication: PRODUCT USED FOR UNKNOWN INDICATION
     Dosage: 500MG/500ML
     Route: 042
     Dates: start: 20120222
  4. DOXORUBICIN HCL [Concomitant]
  5. PREDNISONE [Concomitant]

REACTIONS (2)
  - PLEURAL EFFUSION [None]
  - DYSPNOEA [None]
